FAERS Safety Report 8338266 (Version 2)
Quarter: 2014Q4

REPORT INFORMATION
  Report Type: Report from Study
  Country: US (occurrence: US)
  Receive Date: 20120117
  Receipt Date: 20141014
  Transmission Date: 20150529
  Serious: Yes (Hospitalization)
  Sender: FDA-Public Use
  Company Number: US-BRISTOL-MYERS SQUIBB COMPANY-14137517

PATIENT
  Age: 60 Year
  Sex: Male

DRUGS (6)
  1. MECLIZINE [Concomitant]
     Active Substance: MECLIZINE\MECLIZINE HYDROCHLORIDE
  2. PREVACID [Concomitant]
     Active Substance: LANSOPRAZOLE
  3. IPILIMUMAB [Suspect]
     Active Substance: IPILIMUMAB
     Indication: MALIGNANT MELANOMA
     Dosage: INITIATED ON 06MAR08
     Route: 042
     Dates: start: 20080306, end: 20080327
  4. GABAPENTIN. [Concomitant]
     Active Substance: GABAPENTIN
  5. ENTOCORT [Concomitant]
     Active Substance: BUDESONIDE
  6. CORTEF [Concomitant]
     Active Substance: HYDROCORTISONE

REACTIONS (2)
  - Intestinal perforation [Recovered/Resolved with Sequelae]
  - Colitis [Unknown]

NARRATIVE: CASE EVENT DATE: 20080414
